FAERS Safety Report 13102005 (Version 2)
Quarter: 2018Q1

REPORT INFORMATION
  Report Type: Spontaneous
  Country: IN (occurrence: IN)
  Receive Date: 20170110
  Receipt Date: 20180228
  Transmission Date: 20180508
  Serious: Yes (Death)
  Sender: FDA-Public Use
  Company Number: IN-ASTRAZENECA-2017SE02577

PATIENT
  Age: 17136 Day

DRUGS (3)
  1. OLAPARIB. [Suspect]
     Active Substance: OLAPARIB
     Dosage: 50 MG - 1 X 120
     Route: 048
  2. ACETAMENOPHAN [Concomitant]
  3. ONDANSETRON [Concomitant]
     Active Substance: ONDANSETRON
     Dates: start: 20161125, end: 20161201

REACTIONS (2)
  - Malignant neoplasm progression [Fatal]
  - Cardiac arrest [Fatal]

NARRATIVE: CASE EVENT DATE: 20161201
